FAERS Safety Report 9477872 (Version 2)
Quarter: 2013Q3

REPORT INFORMATION
  Report Type: Report from Study
  Country: US (occurrence: US)
  Receive Date: 20130827
  Receipt Date: 20130827
  Transmission Date: 20140515
  Serious: Yes (Death)
  Sender: FDA-Public Use
  Company Number: US-ROCHE-1195757

PATIENT
  Age: 74 Year
  Sex: Male
  Weight: 116.22 kg

DRUGS (2)
  1. ZELBORAF [Suspect]
     Indication: METASTATIC MALIGNANT MELANOMA
     Route: 048
     Dates: start: 20121205
  2. ZELBORAF [Suspect]
     Route: 048
     Dates: start: 20121101

REACTIONS (9)
  - Death [Fatal]
  - Somnolence [Not Recovered/Not Resolved]
  - Insomnia [Not Recovered/Not Resolved]
  - Nocturia [Not Recovered/Not Resolved]
  - Skin mass [Not Recovered/Not Resolved]
  - Rash [Not Recovered/Not Resolved]
  - Sunburn [Not Recovered/Not Resolved]
  - Nausea [Not Recovered/Not Resolved]
  - Decreased appetite [Not Recovered/Not Resolved]
